FAERS Safety Report 4318778-4 (Version None)
Quarter: 2004Q1

REPORT INFORMATION
  Report Type: 
  Country: None (occurrence: None)
  Receive Date: 20040318
  Receipt Date: 20040316
  Transmission Date: 20041129
  Serious: Yes (Death)
  Sender: FDA-Public Use
  Company Number: GB-GLAXOSMITHKLINE-A0503175A

PATIENT

DRUGS (1)
  1. NAVELBINE [Suspect]
     Indication: MESOTHELIOMA MALIGNANT
     Route: 042

REACTIONS (1)
  - ANAPHYLACTIC SHOCK [None]
